FAERS Safety Report 8427570-0 (Version None)
Quarter: 2012Q2

REPORT INFORMATION
  Report Type: 
  Country: None (occurrence: None)
  Receive Date: 20120323
  Receipt Date: 20111205
  Transmission Date: 20120825
  Serious: Yes (Other)
  Sender: FDA-Public Use
  Company Number: 163-21880-11120600

PATIENT
  Age: 63 Year
  Sex: Female

DRUGS (9)
  1. SEVELAMER (SEVELAMER) [Concomitant]
  2. CALCIUM ACETATE [Concomitant]
  3. VELCADE [Concomitant]
  4. EPOETIN (EPOETIN ALFA) [Concomitant]
  5. ANASTROZOLE [Concomitant]
  6. AMLODIPINE [Concomitant]
  7. PROCHLORPERAZINE MALEATE [Concomitant]
  8. REVLIMID [Suspect]
     Indication: MULTIPLE MYELOMA
     Dosage: 5 MG, 1 IN 1 D, PO
     Route: 048
     Dates: start: 20110601
  9. DEXAMETHASONE [Concomitant]

REACTIONS (2)
  - HAEMOGLOBIN DECREASED [None]
  - NEUTROPENIA [None]
